FAERS Safety Report 6288861-5 (Version None)
Quarter: 2009Q3

REPORT INFORMATION
  Report Type: 
  Country: None (occurrence: None)
  Receive Date: 20090727
  Receipt Date: 20090713
  Transmission Date: 20100115
  Serious: Yes (Other)
  Sender: FDA-Public Use
  Company Number: 001259

PATIENT
  Sex: Male
  Weight: 70 kg

DRUGS (4)
  1. NEUPRO [Suspect]
     Indication: PARKINSON'S DISEASE
     Dosage: (4 MG QD TRANSDERMAL)
     Route: 062
     Dates: start: 20081223, end: 20090601
  2. AZILECT [Concomitant]
  3. LEVOCARB [Concomitant]
  4. MOTILIUM /00498201/ [Concomitant]

REACTIONS (2)
  - PEYRONIE'S DISEASE [None]
  - SKIN REACTION [None]
